FAERS Safety Report 17929496 (Version 1)
Quarter: 2020Q2

REPORT INFORMATION
  Report Type: Spontaneous
  Country: US (occurrence: US)
  Receive Date: 20200622
  Receipt Date: 20200622
  Transmission Date: 20200714
  Serious: Yes (Hospitalization)
  Sender: FDA-Public Use
  Company Number: None

PATIENT
  Age: 79 Year
  Sex: Female

DRUGS (31)
  1. ELIQUIS [Concomitant]
     Active Substance: APIXABAN
  2. ENTECAVIR. [Concomitant]
     Active Substance: ENTECAVIR
  3. GABAPENTIN. [Concomitant]
     Active Substance: GABAPENTIN
  4. METOPROL SUC [Concomitant]
  5. OSCAL + D3 [Concomitant]
  6. FLUTICASONE. [Concomitant]
     Active Substance: FLUTICASONE
  7. IPRATROPIUM [Concomitant]
     Active Substance: IPRATROPIUM
  8. ONDANSETRON [Concomitant]
     Active Substance: ONDANSETRON
  9. PRENISONE [Concomitant]
     Active Substance: PREDNISONE
  10. VITAMIN D [Concomitant]
     Active Substance: VITAMIN D NOS
  11. METHOCARBAM [Suspect]
     Active Substance: METHOCARBAMOL
  12. MIRTAZAPINE. [Concomitant]
     Active Substance: MIRTAZAPINE
  13. ALPRAZOLAM. [Concomitant]
     Active Substance: ALPRAZOLAM
  14. BACLOFEN. [Concomitant]
     Active Substance: BACLOFEN
  15. CETIRIZINE [Concomitant]
     Active Substance: CETIRIZINE HYDROCHLORIDE
  16. MELATONIN [Concomitant]
     Active Substance: MELATONIN
  17. AMOX/K CLAV [Concomitant]
     Active Substance: AMOXICILLIN\CLAVULANATE POTASSIUM
  18. BIOTIN [Concomitant]
     Active Substance: BIOTIN
  19. CARVEDILOL. [Concomitant]
     Active Substance: CARVEDILOL
  20. CELECOXIB. [Concomitant]
     Active Substance: CELECOXIB
  21. CYCLOBENZAPR [Concomitant]
     Active Substance: CYCLOBENZAPRINE
  22. ESOMEPRA MAG [Concomitant]
  23. GNP BISALAX [Concomitant]
  24. OXYCODONE AND ACETAMINOPHEN [Concomitant]
     Active Substance: ACETAMINOPHEN\OXYCODONE HYDROCHLORIDE
  25. ESBRIET [Suspect]
     Active Substance: PIRFENIDONE
     Indication: IDIOPATHIC PULMONARY FIBROSIS
     Route: 048
     Dates: start: 20200110
  26. AMLODIPINE [Concomitant]
     Active Substance: AMLODIPINE BESYLATE
  27. OMEPRAZOLE. [Concomitant]
     Active Substance: OMEPRAZOLE
  28. AMANTADINE. [Suspect]
     Active Substance: AMANTADINE HYDROCHLORIDE
  29. FUROSMIDE [Concomitant]
  30. LEVOTHYROXIN [Concomitant]
     Active Substance: LEVOTHYROXINE
  31. PRAMIPEXOLE. [Concomitant]
     Active Substance: PRAMIPEXOLE

REACTIONS (1)
  - Cardiac disorder [None]

NARRATIVE: CASE EVENT DATE: 20200617
